FAERS Safety Report 15538456 (Version 2)
Quarter: 2019Q2

REPORT INFORMATION
  Report Type: Spontaneous
  Country: CA (occurrence: CA)
  Receive Date: 20181022
  Receipt Date: 20190625
  Transmission Date: 20190711
  Serious: Yes (Other)
  Sender: FDA-Public Use
  Company Number: CA-PFIZER INC-2018423483

PATIENT
  Age: 44 Year
  Sex: Female

DRUGS (11)
  1. SERC [Concomitant]
     Indication: VERTIGO
     Dosage: 16 MG TID (3X/DAY) PRN (AS NEEDED)
     Route: 048
  2. VIT-D 1000 [Concomitant]
     Dosage: 1 DF, 1X/DAY
     Route: 048
  3. MINT PANTOPRAZOLE [Concomitant]
     Dosage: 40 MG, 1X/DAY
     Route: 048
  4. APOTEX OLMESARTAN HCTZ [Concomitant]
     Dosage: 25MG/40MG OD (1X/DAY)
     Route: 048
  5. SAXENDA [Concomitant]
     Active Substance: LIRAGLUTIDE
     Dosage: 3 MG, 1X/DAY
     Route: 058
  6. SYNTHROID [Concomitant]
     Active Substance: LEVOTHYROXINE SODIUM
     Dosage: 0.025 MG TAB + 0.2MG TAB= 0.225 MG OD (1X/DAY)
     Route: 048
  7. LUPIN ESTRADIOL [Concomitant]
     Dosage: 0.5 MG OD (1X/DAY) HS (BEFORE BED)
     Route: 048
  8. APO-MEDROXY [Concomitant]
     Active Substance: MEDROXYPROGESTERONE ACETATE
     Dosage: 2.5 MG OD (1X/DAY) HS (BEFORE BED)
     Route: 048
  9. MINT AMLODIPINE [Concomitant]
     Dosage: 5 MG, 1X/DAY
     Route: 048
  10. GENOTROPIN [Suspect]
     Active Substance: SOMATROPIN
     Indication: GROWTH HORMONE DEFICIENCY
     Dosage: 0.2 MG, ONCE A DAY
     Route: 058
     Dates: start: 20181003, end: 20190412
  11. PMS-OXYBUTYNIN [Concomitant]
     Dosage: 5 MG, 2X/DAY
     Route: 048

REACTIONS (1)
  - Postmenopausal haemorrhage [Unknown]

NARRATIVE: CASE EVENT DATE: 20181008
